FAERS Safety Report 25942602 (Version 8)
Quarter: 2025Q4

REPORT INFORMATION
  Report Type: Report from Study
  Country: EU (occurrence: EU)
  Receive Date: 20251021
  Receipt Date: 20251210
  Transmission Date: 20260117
  Serious: Yes (Hospitalization)
  Sender: ABBVIE
  Company Number: EU-ABBVIE-6510862

PATIENT
  Age: 72 Year
  Sex: Male

DRUGS (4)
  1. FOSCARBIDOPA\FOSLEVODOPA [Suspect]
     Active Substance: FOSCARBIDOPA\FOSLEVODOPA
     Indication: Parkinson^s disease
     Dosage: CRN: 0.36 ML/H, CR: 0.39 ML/H, CRH: 0.41 ML/H, LAST ADMIN 2025
     Route: 058
     Dates: start: 20250108
  2. FOSCARBIDOPA\FOSLEVODOPA [Suspect]
     Active Substance: FOSCARBIDOPA\FOSLEVODOPA
     Dosage: SD: 0.6 ML; CRN: 0.29 ML/H; CR: 0.37 ML/H; CRH: 0.39 ML/H; ED: 0.30 ML.
     Route: 058
     Dates: start: 2025, end: 2025
  3. FOSCARBIDOPA\FOSLEVODOPA [Suspect]
     Active Substance: FOSCARBIDOPA\FOSLEVODOPA
     Dosage: (SD: 0.60 ML), CRN: 0.27 ML/H, CR: 0.37 ML/H, CRH: 0.39 ML/H, ED: 0.30L.
     Route: 058
     Dates: start: 2025
  4. CARBIDOPA\LEVODOPA [Suspect]
     Active Substance: CARBIDOPA\LEVODOPA
     Indication: Product used for unknown indication
     Route: 048

REACTIONS (21)
  - Burning sensation [Recovered/Resolved]
  - Fall [Recovered/Resolved]
  - Infusion site eczema [Not Recovered/Not Resolved]
  - Freezing phenomenon [Recovered/Resolved]
  - Hyperkinesia [Not Recovered/Not Resolved]
  - Hallucination [Not Recovered/Not Resolved]
  - Rib fracture [Recovering/Resolving]
  - Aggression [Not Recovered/Not Resolved]
  - Psychotic disorder [Recovered/Resolved]
  - Tremor [Not Recovered/Not Resolved]
  - Musculoskeletal stiffness [Not Recovered/Not Resolved]
  - Blood pressure decreased [Not Recovered/Not Resolved]
  - Infusion site hypertrophy [Not Recovered/Not Resolved]
  - Somnolence [Not Recovered/Not Resolved]
  - Infusion site swelling [Unknown]
  - Fall [Unknown]
  - On and off phenomenon [Not Recovered/Not Resolved]
  - Psychotic disorder [Not Recovered/Not Resolved]
  - Hallucination, visual [Not Recovered/Not Resolved]
  - Orthostatic hypotension [Not Recovered/Not Resolved]
  - Sensation of foreign body [Not Recovered/Not Resolved]

NARRATIVE: CASE EVENT DATE: 20250101
